FAERS Safety Report 6563860-4 (Version None)
Quarter: 2010Q1

REPORT INFORMATION
  Report Type: 
  Country: None (occurrence: None)
  Receive Date: 20100130
  Receipt Date: 20091229
  Transmission Date: 20100710
  Serious: No
  Sender: FDA-Public Use
  Company Number: US-ABBOTT-09P-163-0616742-00

PATIENT
  Sex: Female
  Weight: 59.02 kg

DRUGS (2)
  1. HUMIRA [Suspect]
     Indication: CROHN'S DISEASE
     Dates: start: 20080505, end: 20091101
  2. HUMIRA [Suspect]
     Dates: start: 20091101

REACTIONS (6)
  - CROHN'S DISEASE [None]
  - DIARRHOEA [None]
  - HYPOPHAGIA [None]
  - INTESTINAL FISTULA [None]
  - SINUSITIS [None]
  - WEIGHT DECREASED [None]
